FAERS Safety Report 7703413-5 (Version None)
Quarter: 2011Q3

REPORT INFORMATION
  Report Type: 
  Country: None (occurrence: None)
  Receive Date: 20110823
  Receipt Date: 20110823
  Transmission Date: 20111222
  Serious: Yes (Hospitalization)
  Sender: FDA-Public Use
  Company Number: None

PATIENT
  Age: 63 Year
  Sex: Female
  Weight: 83.914 kg

DRUGS (1)
  1. PRADAXA [Suspect]
     Dosage: 75 MG
     Route: 048
     Dates: start: 20110531, end: 20110613

REACTIONS (1)
  - INTERNATIONAL NORMALISED RATIO INCREASED [None]
